FAERS Safety Report 5696565-2 (Version None)
Quarter: 2008Q2

REPORT INFORMATION
  Report Type: 
  Country: None (occurrence: None)
  Receive Date: 20080401
  Receipt Date: 20080130
  Transmission Date: 20081010
  Serious: Yes (Hospitalization)
  Sender: FDA-Public Use
  Company Number: 166958USA

PATIENT
  Age: 3 Year
  Sex: Male
  Weight: 17.6903 kg

DRUGS (2)
  1. AMOXICILLIN [Suspect]
     Indication: SINUSITIS
     Dosage: 400MG/ML (7 ML, 2 IN 1 D),ORAL
     Route: 048
     Dates: start: 20061229, end: 20070104
  2. OSELTAMIVIR [Suspect]
     Indication: INFLUENZA
     Dosage: 4 ML (4 MG/ML, 2 IN 1 D),ORAL
     Route: 048
     Dates: start: 20061219, end: 20061223

REACTIONS (1)
  - SERUM SICKNESS [None]
